FAERS Safety Report 10094656 (Version 1)
Quarter: 2014Q2

REPORT INFORMATION
  Report Type: Spontaneous
  Country: US (occurrence: US)
  Receive Date: 20140422
  Receipt Date: 20140422
  Transmission Date: 20141212
  Serious: No
  Sender: FDA-Public Use
  Company Number: US-BAYER-2014-057793

PATIENT
  Sex: Female

DRUGS (4)
  1. BAYER ASPIRIN REGIMEN ADULT LOW STRENGTH [Suspect]
     Indication: ANTICOAGULANT THERAPY
     Dosage: 1 DF, BID
     Route: 048
  2. BAYER ASPIRIN REGIMEN ADULT LOW STRENGTH [Suspect]
     Indication: HYPERTENSION
  3. BAYER CHEWABLE LOW DOSE BABY ASPIRIN TABLET ORANGE [Suspect]
     Indication: ANTICOAGULANT THERAPY
     Dosage: 1 DF, BID
     Route: 048
  4. BAYER CHEWABLE LOW DOSE BABY ASPIRIN TABLET ORANGE [Suspect]
     Indication: HYPERTENSION

REACTIONS (2)
  - Intentional product misuse [None]
  - Tinnitus [Recovered/Resolved]
